FAERS Safety Report 13974961 (Version 5)
Quarter: 2022Q2

REPORT INFORMATION
  Report Type: Report from Study
  Country: GR (occurrence: None)
  Receive Date: 20170915
  Receipt Date: 20220413
  Transmission Date: 20220720
  Serious: Yes (Hospitalization)
  Sender: FDA-Public Use
  Company Number: GR-ROCHE-1991738

PATIENT
  Age: 74 Year
  Sex: Male
  Weight: 84 kg

DRUGS (7)
  1. VEMURAFENIB [Suspect]
     Active Substance: VEMURAFENIB
     Indication: Malignant melanoma
     Dosage: DOSE BLINDED?DATE OF MOST RECENT DOSE PRIOR TO SAE: 07/SEP/2017 (4 TABLET)
     Route: 048
     Dates: start: 20170718
  2. COBIMETINIB [Suspect]
     Active Substance: COBIMETINIB
     Indication: Malignant melanoma
     Dosage: DAILY FROM DAYS 1-21, FOLLOWED BY 7 DAYS REST?DATE OF MOST RECENT DOSE OF COBIMETINIB PRIOR TO SAE O
     Route: 048
     Dates: start: 20170718
  3. ATEZOLIZUMAB [Suspect]
     Active Substance: ATEZOLIZUMAB
     Indication: Malignant melanoma
     Dosage: DOSE CONCENTRATION: 3.36 MG/ML?DATE OF MOST RECENT DOSE PRIOR TO SAE: 29/AUG/2017
     Route: 041
     Dates: start: 20170816
  4. CIPROFLOXACIN [Concomitant]
     Active Substance: CIPROFLOXACIN
     Indication: Diarrhoea
     Route: 048
     Dates: start: 20170824, end: 20170829
  5. IMODIUM [Concomitant]
     Active Substance: LOPERAMIDE HYDROCHLORIDE
     Indication: Diarrhoea
     Route: 048
     Dates: start: 20170824, end: 20170829
  6. NYSTAMONT [Concomitant]
     Indication: Stomatitis
     Route: 061
     Dates: start: 20170801, end: 20170808
  7. AVELOX [Concomitant]
     Active Substance: MOXIFLOXACIN HYDROCHLORIDE
     Indication: Respiratory tract infection
     Route: 048
     Dates: start: 20171227, end: 20180103

REACTIONS (1)
  - Ventricular arrhythmia [Recovered/Resolved]

NARRATIVE: CASE EVENT DATE: 20170906
